FAERS Safety Report 21128505 (Version 2)
Quarter: 2022Q3

REPORT INFORMATION
  Report Type: Spontaneous
  Country: FR (occurrence: None)
  Receive Date: 20220725
  Receipt Date: 20220905
  Transmission Date: 20221027
  Serious: Yes (Death, Disabling)
  Sender: FDA-Public Use
  Company Number: FR-ROCHE-3142797

PATIENT
  Age: 58 Year
  Sex: Female
  Weight: 103.5 kg

DRUGS (1)
  1. KADCYLA [Suspect]
     Active Substance: ADO-TRASTUZUMAB EMTANSINE
     Indication: Adenocarcinoma
     Route: 065
     Dates: start: 20211007

REACTIONS (1)
  - Optic neuritis [Fatal]

NARRATIVE: CASE EVENT DATE: 20220701
